FAERS Safety Report 8572757-X (Version None)
Quarter: 2012Q3

REPORT INFORMATION
  Report Type: 
  Country: None (occurrence: None)
  Receive Date: 20120806
  Receipt Date: 20120802
  Transmission Date: 20120928
  Serious: Yes (Death)
  Sender: FDA-Public Use
  Company Number: CA-ROCHE-1096590

PATIENT
  Sex: Male
  Weight: 85.352 kg

DRUGS (5)
  1. CHLORPROMAZINE HCL [Concomitant]
     Indication: HICCUPS
     Dosage: REPORTED AS TEVA-CHLORPROMAZINE
  2. OMEPRAZOLE [Concomitant]
  3. AVASTIN [Suspect]
     Indication: GLIOBLASTOMA
     Route: 042
     Dates: start: 20120125, end: 20120620
  4. DEXAMETHASONE [Concomitant]
  5. INDAPAMIDE [Concomitant]
     Indication: HYPERTENSION

REACTIONS (1)
  - DISEASE PROGRESSION [None]
